FAERS Safety Report 13767655 (Version 10)
Quarter: 2018Q2

REPORT INFORMATION
  Report Type: Spontaneous
  Country: ES (occurrence: ES)
  Receive Date: 20170719
  Receipt Date: 20180625
  Transmission Date: 20180711
  Serious: Yes (Other)
  Sender: FDA-Public Use
  Company Number: ES-PFIZER INC-2017262036

PATIENT
  Age: 47 Year
  Sex: Male

DRUGS (8)
  1. QUTENZA [Concomitant]
     Active Substance: CAPSAICIN
     Dosage: 3RD PATCH
     Dates: start: 20170703
  2. TERBASMIN /00199201/ [Concomitant]
     Dosage: UNK UNK, AS NEEDED
  3. NOLOTIL /06276702/ [Concomitant]
     Active Substance: METAMIZOLE MAGNESIUM
     Dosage: UNK UNK, AS NEEDED
  4. LYRICA [Suspect]
     Active Substance: PREGABALIN
     Indication: PROCEDURAL PAIN
     Dosage: 75 MG, 2X/DAY (ONE IN THE MORNING AND ONE IN THE EVENING)
     Route: 048
     Dates: start: 201610, end: 20170702
  5. QUTENZA [Concomitant]
     Active Substance: CAPSAICIN
     Indication: PROCEDURAL PAIN
     Dosage: 1ST PATCH
     Dates: start: 201610
  6. QUTENZA [Concomitant]
     Active Substance: CAPSAICIN
     Dosage: 2ND PATCH
     Dates: start: 201702
  7. ZALDIAR [Concomitant]
     Active Substance: ACETAMINOPHEN\TRAMADOL HYDROCHLORIDE
     Dosage: UNK UNK, AS NEEDED
  8. STRATTERA [Suspect]
     Active Substance: ATOMOXETINE HYDROCHLORIDE
     Indication: PSYCHOMOTOR HYPERACTIVITY
     Dosage: 1 DF, 1X/DAY
     Dates: start: 2013

REACTIONS (4)
  - Dizziness [Unknown]
  - Condition aggravated [Not Recovered/Not Resolved]
  - Visual field defect [Not Recovered/Not Resolved]
  - Blindness [Unknown]

NARRATIVE: CASE EVENT DATE: 2017
